FAERS Safety Report 9378855 (Version 3)
Quarter: 2013Q3

REPORT INFORMATION
  Report Type: Spontaneous
  Country: US (occurrence: None)
  Receive Date: 20130626
  Receipt Date: 20130716
  Transmission Date: 20140515
  Serious: Yes (Other)
  Sender: FDA-Public Use
  Company Number: ADR-2013-01054

PATIENT
  Age: 55 Year
  Sex: Female

DRUGS (3)
  1. BACLOFEN INTRATHECAL [Suspect]
     Indication: PAIN
  2. CLONIDINE [Concomitant]
  3. DILAUDID (HYDROMORPHONE) [Concomitant]

REACTIONS (8)
  - Nervous system disorder [None]
  - Malaise [None]
  - Hypophagia [None]
  - Weight decreased [None]
  - Drug abuse [None]
  - Pain [None]
  - Movement disorder [None]
  - Activities of daily living impaired [None]
